FAERS Safety Report 10261388 (Version 2)
Quarter: 2014Q3

REPORT INFORMATION
  Report Type: Spontaneous
  Country: US (occurrence: US)
  Receive Date: 20140626
  Receipt Date: 20140710
  Transmission Date: 20150326
  Serious: Yes (Death, Other)
  Sender: FDA-Public Use
  Company Number: US-BRISTOL-MYERS SQUIBB COMPANY-21054861

PATIENT
  Age: 69 Year
  Sex: Male

DRUGS (10)
  1. CELEBREX [Concomitant]
     Active Substance: CELECOXIB
  2. LIPITOR [Concomitant]
     Active Substance: ATORVASTATIN CALCIUM
  3. LISINOPRIL. [Concomitant]
     Active Substance: LISINOPRIL
  4. NIASPAN [Concomitant]
     Active Substance: NIACIN
  5. PEPCID [Concomitant]
     Active Substance: FAMOTIDINE
  6. REQUIP [Concomitant]
     Active Substance: ROPINIROLE HYDROCHLORIDE
  7. TAMSULOSIN [Concomitant]
     Active Substance: TAMSULOSIN
  8. PREDNISONE. [Concomitant]
     Active Substance: PREDNISONE
  9. YERVOY [Suspect]
     Active Substance: IPILIMUMAB
     Indication: METASTATIC MALIGNANT MELANOMA
     Dosage: 2ND DOSE:28MAY14
     Route: 042
     Dates: start: 20140507
  10. PROSCAR [Concomitant]
     Active Substance: FINASTERIDE

REACTIONS (1)
  - Colitis [Fatal]

NARRATIVE: CASE EVENT DATE: 201406
